FAERS Safety Report 16284375 (Version 1)
Quarter: 2019Q2

REPORT INFORMATION
  Report Type: Report from Study
  Country: None (occurrence: US)
  Receive Date: 20190508
  Receipt Date: 20190508
  Transmission Date: 20190711
  Serious: Yes (Hospitalization, Other)
  Sender: FDA-Public Use
  Company Number: US-ABBVIE-19K-163-2771055-00

PATIENT
  Age: 82 Year
  Sex: Female

DRUGS (3)
  1. VENCLEXTA [Suspect]
     Active Substance: VENETOCLAX
     Dosage: DAY 3 TO 30
     Route: 048
     Dates: start: 20190428
  2. VENCLEXTA [Suspect]
     Active Substance: VENETOCLAX
     Dosage: DAY TWO
     Route: 048
     Dates: start: 20190427, end: 20190427
  3. VENCLEXTA [Suspect]
     Active Substance: VENETOCLAX
     Indication: ACUTE MYELOID LEUKAEMIA
     Dosage: DAY ONE
     Route: 048
     Dates: start: 20190426, end: 20190426

REACTIONS (8)
  - Hypophagia [Unknown]
  - Toxicity to various agents [Unknown]
  - Dehydration [Unknown]
  - Acute myeloid leukaemia [Unknown]
  - Asthenia [Unknown]
  - Depression [Unknown]
  - Fatigue [Unknown]
  - Decreased appetite [Unknown]

NARRATIVE: CASE EVENT DATE: 201904
